FAERS Safety Report 16790247 (Version 1)
Quarter: 2019Q3

REPORT INFORMATION
  Report Type: Spontaneous
  Country: FR (occurrence: FR)
  Receive Date: 20190910
  Receipt Date: 20190910
  Transmission Date: 20191005
  Serious: Yes (Hospitalization)
  Sender: FDA-Public Use
  Company Number: PHHY2019FR205968

PATIENT
  Age: 13 Year
  Sex: Female

DRUGS (2)
  1. ULTRA-LEVURE [Suspect]
     Active Substance: SACCHAROMYCES CEREVISIAE
     Indication: SUICIDE ATTEMPT
     Dosage: 50 MG, UNK (1 TOTAL)
     Route: 048
     Dates: start: 20190321, end: 20190321
  2. PARACETAMOL [Suspect]
     Active Substance: ACETAMINOPHEN
     Indication: SUICIDE ATTEMPT
     Dosage: 17.5 G, UNK (1 TOTAL)
     Route: 048
     Dates: start: 20190321, end: 20190321

REACTIONS (6)
  - Vomiting [Recovered/Resolved]
  - Vertigo [Recovered/Resolved]
  - Dyspnoea [Recovered/Resolved]
  - Toxicity to various agents [Recovered/Resolved]
  - Headache [Recovered/Resolved]
  - Loss of consciousness [Recovered/Resolved]

NARRATIVE: CASE EVENT DATE: 20190321
